FAERS Safety Report 8612453-3 (Version None)
Quarter: 2012Q3

REPORT INFORMATION
  Report Type: 
  Country: None (occurrence: None)
  Receive Date: 20120822
  Receipt Date: 20120815
  Transmission Date: 20120928
  Serious: Yes (Hospitalization)
  Sender: FDA-Public Use
  Company Number: US-US-EMD SERONO, INC.-7057705

PATIENT
  Sex: Female
  Weight: 69 kg

DRUGS (5)
  1. TOPAMAX [Concomitant]
     Indication: MIGRAINE
  2. IBUPROFEN [Concomitant]
     Indication: PRODUCT USED FOR UNKNOWN INDICATION
     Dates: start: 20110101
  3. ASPIRIN [Concomitant]
     Indication: PRODUCT USED FOR UNKNOWN INDICATION
     Dates: end: 20110101
  4. IRON PILLS [Concomitant]
     Indication: BLOOD IRON DECREASED
  5. REBIF [Suspect]
     Indication: MULTIPLE SCLEROSIS
     Route: 058
     Dates: start: 20071211

REACTIONS (9)
  - INJECTION SITE HAEMATOMA [None]
  - INJECTION SITE PAIN [None]
  - CYST [None]
  - INCISION SITE INFECTION [None]
  - HAEMORRHAGE [None]
  - BALANCE DISORDER [None]
  - PELVIC PAIN [None]
  - FATIGUE [None]
  - PAIN [None]
